FAERS Safety Report 9398968 (Version 1)
Quarter: 2013Q3

REPORT INFORMATION
  Report Type: Spontaneous
  Country: US (occurrence: US)
  Receive Date: 20130714
  Receipt Date: 20130714
  Transmission Date: 20140515
  Serious: Yes (Other)
  Sender: FDA-Public Use
  Company Number: US-TEVA-418523USA

PATIENT
  Age: 12 Year
  Sex: Male
  Weight: 38.59 kg

DRUGS (3)
  1. PROAIR HFA [Suspect]
     Route: 055
     Dates: start: 20130710
  2. AZITHROMYCIN [Concomitant]
  3. INSULIN [Concomitant]

REACTIONS (1)
  - Blood glucose increased [Unknown]
